FAERS Safety Report 4915215-3 (Version None)
Quarter: 2006Q1

REPORT INFORMATION
  Report Type: 
  Country: None (occurrence: None)
  Receive Date: 20060216
  Receipt Date: 20060216
  Transmission Date: 20060701
  Serious: Yes (Hospitalization)
  Sender: FDA-Public Use
  Company Number: None

PATIENT
  Sex: Female
  Weight: 95.709 kg

DRUGS (2)
  1. LABETALOL HCL [Suspect]
     Indication: HYPERTENSION
     Dosage: 200MG PO QD PRIOR TO ADMISSION
     Route: 048
  2. METOPROLOL [Suspect]
     Indication: HYPERTENSION
     Dosage: 50 MG PO QD
     Dates: start: 20050818

REACTIONS (2)
  - BRADYCARDIA [None]
  - HEART RATE IRREGULAR [None]
